FAERS Safety Report 19305574 (Version 2)
Quarter: 2021Q2

REPORT INFORMATION
  Report Type: Spontaneous
  Country: US (occurrence: US)
  Receive Date: 20210526
  Receipt Date: 20210603
  Transmission Date: 20210717
  Serious: Yes (Life-Threatening, Hospitalization, Other)
  Sender: FDA-Public Use
  Company Number: US-GLENMARK PHARMACEUTICALS-2021GMK054114

PATIENT
  Age: 69 Year
  Sex: Male

DRUGS (1)
  1. DILTIAZEM HYDROCHLORIDE. [Suspect]
     Active Substance: DILTIAZEM HYDROCHLORIDE
     Indication: ATRIAL FIBRILLATION
     Dosage: AM (UNK (SELF ADMINISTERED UNKNOWN QUANTITY OF DILTIAZEM IN THE MORNING)
     Route: 065

REACTIONS (4)
  - Self-medication [Unknown]
  - Intentional product use issue [Unknown]
  - Accidental overdose [Recovered/Resolved]
  - BRASH syndrome [Recovering/Resolving]
